FAERS Safety Report 8539543-8 (Version None)
Quarter: 2012Q3

REPORT INFORMATION
  Report Type: 
  Country: None (occurrence: None)
  Receive Date: 20120726
  Receipt Date: 20120713
  Transmission Date: 20120928
  Serious: Yes (Hospitalization)
  Sender: FDA-Public Use
  Company Number: US-ELI_LILLY_AND_COMPANY-US201207005441

PATIENT
  Sex: Female

DRUGS (3)
  1. METFORMIN HYDROCHLORIDE [Concomitant]
     Dosage: 500 MG, BID
  2. LEVEMIR [Concomitant]
     Dosage: 88 U, EACH EVENING
  3. HUMALOG [Suspect]
     Indication: TYPE 2 DIABETES MELLITUS
     Dosage: 15 U, TID

REACTIONS (3)
  - EXPIRED DRUG ADMINISTERED [None]
  - CATARACT [None]
  - GLAUCOMA [None]
